FAERS Safety Report 16882046 (Version 4)
Quarter: 2022Q4

REPORT INFORMATION
  Report Type: Report from Study
  Country: JP (occurrence: JP)
  Receive Date: 20191003
  Receipt Date: 20221129
  Transmission Date: 20230112
  Serious: Yes (Other)
  Sender: FDA-Public Use
  Company Number: JP-BIOGEN-2019BI00789866

PATIENT
  Age: 43 Year
  Sex: Male

DRUGS (6)
  1. TECFIDERA [Suspect]
     Active Substance: DIMETHYL FUMARATE
     Indication: Relapsing-remitting multiple sclerosis
     Route: 050
     Dates: start: 20180705, end: 20180719
  2. TECFIDERA [Suspect]
     Active Substance: DIMETHYL FUMARATE
     Route: 050
     Dates: start: 20180719
  3. LOPEMIN [Concomitant]
     Indication: Prophylaxis
     Route: 050
     Dates: start: 20180705, end: 20180828
  4. NAUZELIN [Concomitant]
     Active Substance: DOMPERIDONE
     Indication: Prophylaxis
     Route: 050
     Dates: start: 20180705, end: 20180710
  5. LANSOPRAZOLE [Concomitant]
     Active Substance: LANSOPRAZOLE
     Indication: Prophylaxis
     Route: 050
     Dates: start: 20180705, end: 20180719
  6. XYZAL [Concomitant]
     Active Substance: LEVOCETIRIZINE DIHYDROCHLORIDE
     Indication: Prophylaxis
     Route: 050
     Dates: start: 20180705, end: 20180719

REACTIONS (4)
  - Rhabdomyolysis [Recovered/Resolved]
  - Nausea [Recovered/Resolved]
  - Flushing [Recovered/Resolved]
  - Blood alkaline phosphatase increased [Recovered/Resolved]

NARRATIVE: CASE EVENT DATE: 20180706
